FAERS Safety Report 4469502-6 (Version None)
Quarter: 2004Q4

REPORT INFORMATION
  Report Type: 
  Country: None (occurrence: None)
  Receive Date: 20041005
  Receipt Date: 20040924
  Transmission Date: 20050328
  Serious: Yes (Other)
  Sender: FDA-Public Use
  Company Number: ENT 2004-0182

PATIENT
  Age: 74 Year
  Sex: Male
  Weight: 82.99 kg

DRUGS (3)
  1. COMTAN [Suspect]
     Indication: PARKINSON'S DISEASE
     Dosage: 600 MG, 3 IN 1 D, ORAL
     Route: 048
     Dates: start: 20040701
  2. REQUIP (UNKNOWN) [Concomitant]
  3. CARBIDOPA W/LEVODOPA (UNKNOWN) [Concomitant]

REACTIONS (3)
  - DIARRHOEA [None]
  - DIZZINESS [None]
  - WEIGHT DECREASED [None]
